FAERS Safety Report 13958499 (Version 11)
Quarter: 2018Q1

REPORT INFORMATION
  Report Type: Spontaneous
  Country: US (occurrence: US)
  Receive Date: 20170912
  Receipt Date: 20180122
  Transmission Date: 20180508
  Serious: Yes (Hospitalization, Other)
  Sender: FDA-Public Use
  Company Number: US-PFIZER INC-2017390925

PATIENT
  Age: 70 Year
  Sex: Female
  Weight: 66.21 kg

DRUGS (8)
  1. SUTENT [Suspect]
     Active Substance: SUNITINIB MALATE
     Dosage: 50 MG, CYCLIC (28 DAYS ON/14 DAYS OFF)
     Dates: start: 20170823
  2. SUTENT [Suspect]
     Active Substance: SUNITINIB MALATE
     Dosage: 25 MG, CYCLIC (2X12.5 CAPSULES)
  3. SUTENT [Suspect]
     Active Substance: SUNITINIB MALATE
     Dosage: 12.5 MG, CYCLIC (STARTED ON 12.5 MG DAILY FOR 1 WEEK THEN WILL INCREASE BY 1-12.5 MG CAPSULE)
     Dates: start: 20171010
  4. AMLODIPINE [Concomitant]
     Active Substance: AMLODIPINE BESYLATE
     Indication: BLOOD PRESSURE ABNORMAL
     Dosage: UNK
  5. SUTENT [Suspect]
     Active Substance: SUNITINIB MALATE
     Dosage: 37.5 MG, CYCLIC (3X12.5 CAPSULES)
  6. SUTENT [Suspect]
     Active Substance: SUNITINIB MALATE
     Indication: METASTATIC RENAL CELL CARCINOMA
     Dosage: 50 MG, DAILY (12.5MG 4 DAILY (TOTAL 50MG))
     Route: 048
     Dates: start: 20170802, end: 201712
  7. SUTENT [Suspect]
     Active Substance: SUNITINIB MALATE
     Dosage: 50 MG, CYCLIC (28 DAYS ON/14 DAYS OFF)
     Dates: start: 20171010, end: 20171212
  8. SUTENT [Suspect]
     Active Substance: SUNITINIB MALATE
     Dosage: 50 MG, DAILY
     Route: 048
     Dates: start: 20170809

REACTIONS (29)
  - Weight increased [Recovered/Resolved]
  - Swelling face [Recovered/Resolved]
  - Eye swelling [Recovered/Resolved]
  - Renal failure [Recovered/Resolved]
  - Diarrhoea [Recovered/Resolved]
  - Nausea [Recovered/Resolved]
  - Joint swelling [Recovered/Resolved]
  - Tooth abscess [Recovered/Resolved]
  - Hunger [Recovered/Resolved]
  - Dyspepsia [Recovered/Resolved]
  - Feeling drunk [Unknown]
  - Vomiting [Unknown]
  - Asthenia [Unknown]
  - Neoplasm progression [Unknown]
  - Renal function test abnormal [Recovering/Resolving]
  - Dizziness [Unknown]
  - Blood urea increased [Unknown]
  - Blood pressure increased [Unknown]
  - Dysphagia [Not Recovered/Not Resolved]
  - Tooth discolouration [Unknown]
  - Early satiety [Recovered/Resolved]
  - Hair colour changes [Unknown]
  - Glomerular filtration rate increased [Recovered/Resolved]
  - Hypotension [Unknown]
  - Dysgeusia [Unknown]
  - Yellow nail syndrome [Recovered/Resolved]
  - Blood creatinine increased [Recovered/Resolved]
  - Glomerular filtration rate decreased [Unknown]
  - Fatigue [Not Recovered/Not Resolved]

NARRATIVE: CASE EVENT DATE: 2017
